FAERS Safety Report 18235501 (Version 1)
Quarter: 2020Q3

REPORT INFORMATION
  Report Type: Spontaneous
  Country: GB (occurrence: GB)
  Receive Date: 20200905
  Receipt Date: 20200905
  Transmission Date: 20201103
  Serious: Yes (Other)
  Sender: FDA-Public Use
  Company Number: GB-TEVA-2020-GB-1822706

PATIENT
  Age: 30 Year
  Sex: Female
  Weight: 97.06 kg

DRUGS (1)
  1. MIRTAZAPINE. [Suspect]
     Active Substance: MIRTAZAPINE
     Indication: DEPRESSION
     Route: 048
     Dates: start: 201912, end: 202007

REACTIONS (6)
  - Agitation [Recovered/Resolved]
  - Restless legs syndrome [Recovered/Resolved]
  - Chest discomfort [Recovered/Resolved]
  - Restlessness [Unknown]
  - Abnormal weight gain [Recovered/Resolved]
  - Somnolence [Recovered/Resolved]

NARRATIVE: CASE EVENT DATE: 201912
